FAERS Safety Report 5285487-7 (Version None)
Quarter: 2007Q1

REPORT INFORMATION
  Report Type: 
  Country: None (occurrence: None)
  Receive Date: 20070328
  Receipt Date: 20070312
  Transmission Date: 20070707
  Serious: Yes (Other)
  Sender: FDA-Public Use
  Company Number: ESP-AE-07-EST-006

PATIENT
  Age: 55 Year
  Sex: Female

DRUGS (2)
  1. ESTRASORB [Suspect]
     Indication: MENOPAUSAL SYMPTOMS
     Dosage: 1 POUCH-QD-TOPICAL
     Route: 061
     Dates: start: 20070201, end: 20070309
  2. HORMONAL THERAPY (INJECTION) [Concomitant]

REACTIONS (4)
  - DIZZINESS [None]
  - DRUG DOSE OMISSION [None]
  - HEADACHE [None]
  - LOSS OF CONSCIOUSNESS [None]
